FAERS Safety Report 7552715-4 (Version None)
Quarter: 2011Q2

REPORT INFORMATION
  Report Type: 
  Country: None (occurrence: None)
  Receive Date: 20110616
  Receipt Date: 20110328
  Transmission Date: 20111010
  Serious: No
  Sender: FDA-Public Use
  Company Number: US-ABBOTT-11P-163-0714666-00

PATIENT
  Sex: Female
  Weight: 43.13 kg

DRUGS (2)
  1. ZOCOR [Concomitant]
     Indication: BLOOD CHOLESTEROL INCREASED
  2. TRILIPIX [Suspect]
     Indication: BLOOD CHOLESTEROL INCREASED
     Dates: start: 20110301

REACTIONS (4)
  - MYALGIA [None]
  - ASTHENIA [None]
  - GAIT DISTURBANCE [None]
  - FEELING COLD [None]
